FAERS Safety Report 4793438-4 (Version None)
Quarter: 2005Q4

REPORT INFORMATION
  Report Type: 
  Country: None (occurrence: None)
  Receive Date: 20051011
  Receipt Date: 20041213
  Transmission Date: 20060501
  Serious: No
  Sender: FDA-Public Use
  Company Number: US-BRISTOL-MYERS SQUIBB COMPANY-12795027

PATIENT
  Age: 36 Year
  Sex: Female
  Weight: 57 kg

DRUGS (1)
  1. GLUCOPHAGE XR [Suspect]
     Indication: POLYCYSTIC OVARIES
     Route: 048

REACTIONS (1)
  - METRORRHAGIA [None]
